FAERS Safety Report 16135005 (Version 1)
Quarter: 2019Q1

REPORT INFORMATION
  Report Type: Spontaneous
  Country: DE (occurrence: DE)
  Receive Date: 20190329
  Receipt Date: 20190329
  Transmission Date: 20190418
  Serious: Yes (Death)
  Sender: FDA-Public Use
  Company Number: DE-ASTRAZENECA-2019SE47846

PATIENT
  Age: 74 Year
  Sex: Female
  Weight: 110 kg

DRUGS (2)
  1. ZOLEDRONIC ACID [Suspect]
     Active Substance: ZOLEDRONIC ACID
     Indication: METASTASES TO BONE
     Dosage: 4 MG, QMO
     Route: 042
     Dates: start: 20150531
  2. FASLODEX [Suspect]
     Active Substance: FULVESTRANT
     Indication: ANTIOESTROGEN THERAPY
     Dosage: 500 MG, QMO
     Route: 030
     Dates: start: 20150716

REACTIONS (1)
  - Hepatic failure [Fatal]

NARRATIVE: CASE EVENT DATE: 20150820
